FAERS Safety Report 8263307-6 (Version None)
Quarter: 2012Q2

REPORT INFORMATION
  Report Type: 
  Country: None (occurrence: None)
  Receive Date: 20120405
  Receipt Date: 20120326
  Transmission Date: 20120825
  Serious: Yes (Other)
  Sender: FDA-Public Use
  Company Number: US-ELI_LILLY_AND_COMPANY-US201110007336

PATIENT
  Sex: Male

DRUGS (4)
  1. HUMALOG [Suspect]
     Indication: DIABETES MELLITUS
     Dosage: 10 U, PRN
  2. HUMULIN R [Suspect]
     Indication: DIABETES MELLITUS
     Dosage: UNK, PRN
     Dates: start: 20120201
  3. LEVEMIR [Concomitant]
     Dosage: 7 U, EACH EVENING
  4. HUMALOG [Suspect]
     Dosage: 10 U, PRN

REACTIONS (7)
  - DRY MOUTH [None]
  - BLOOD GLUCOSE INCREASED [None]
  - TOE AMPUTATION [None]
  - BLOOD GLUCOSE DECREASED [None]
  - DIZZINESS [None]
  - EUPHORIC MOOD [None]
  - FEELING ABNORMAL [None]
